FAERS Safety Report 9689825 (Version 2)
Quarter: 2014Q1

REPORT INFORMATION
  Report Type: Report from Study
  Country: US (occurrence: US)
  Receive Date: 20131115
  Receipt Date: 20140103
  Transmission Date: 20141002
  Serious: Yes (Death, Other)
  Sender: FDA-Public Use
  Company Number: US-ROCHE-1303356

PATIENT
  Sex: 0

DRUGS (9)
  1. RITUXIMAB [Suspect]
     Indication: CHRONIC LYMPHOCYTIC LEUKAEMIA
     Dosage: ONCE
     Route: 042
  2. RITUXIMAB [Suspect]
     Indication: LYMPHOCYTIC LEUKAEMIA
     Dosage: ONCE PER CYCLE FOR CYCLES 2- 6
     Route: 042
  3. RITUXIMAB [Suspect]
     Dosage: GIVEN DAY 1 OF EACH 3 MONTH CYCLE OF MAINTENANCE FOR UP TO 8 CYCLES
     Route: 042
  4. FLUDARABINE [Suspect]
     Indication: LYMPHOCYTIC LEUKAEMIA
     Dosage: ON DAYS 1-3 OF EACH CYCLE OF EACH CYCLE GIVEN EVERY 28 DAYS
     Route: 042
  5. FLUDARABINE [Suspect]
     Indication: CHRONIC LYMPHOCYTIC LEUKAEMIA
  6. CYCLOPHOSPHAMIDE [Suspect]
     Indication: LYMPHOCYTIC LEUKAEMIA
     Dosage: ON DAYS 1-3 OF EACH CYCLE GIVEN EVERY 28 DAYS
     Route: 042
  7. CYCLOPHOSPHAMIDE [Suspect]
     Indication: CHRONIC LYMPHOCYTIC LEUKAEMIA
  8. VORINOSTAT [Suspect]
     Indication: LYMPHOCYTIC LEUKAEMIA
     Route: 065
  9. VORINOSTAT [Suspect]
     Indication: CHRONIC LYMPHOCYTIC LEUKAEMIA

REACTIONS (4)
  - Sepsis [Fatal]
  - Gastrointestinal disorder [Unknown]
  - Fatigue [Unknown]
  - Pancytopenia [Unknown]
